FAERS Safety Report 10024290 (Version 3)
Quarter: 2014Q3

REPORT INFORMATION
  Report Type: Spontaneous
  Country: CA (occurrence: None)
  Receive Date: 20140129
  Receipt Date: 20140707
  Transmission Date: 20150326
  Serious: Yes (Life-Threatening)
  Sender: FDA-Public Use
  Company Number: KAD201401-000100

PATIENT
  Age: 56 Year
  Sex: Male

DRUGS (11)
  1. TELAPREVIR (TELAPREVIR) [Suspect]
     Active Substance: TELAPREVIR
     Indication: CHRONIC HEPATITIS C
     Dosage: 750 MG, THRICE DAILY, TOTAL: 2250 MG, ORAL
     Route: 048
     Dates: start: 20130914, end: 20131126
  2. ACETYLSALICYLIC ACID [Concomitant]
     Active Substance: ASPIRIN
  3. BMS 914143 (PEGINTERFERON LAMBDA) [Suspect]
     Active Substance: PEGINTERFERON LAMBDA-1A
     Indication: CHRONIC HEPATITIS C
     Route: 058
     Dates: start: 20130913, end: 20140116
  4. DICLOFENAC SODIUM PLUS MISOPROSTOL (DICLOFENAC SODIUM, MISOPROSTOL) (DICLOFENAC SODIUM, MISOPROSTOL) [Concomitant]
  5. HEPARIN [Concomitant]
     Active Substance: HEPARIN SODIUM
  6. RIBAVIRIN. [Suspect]
     Active Substance: RIBAVIRIN
     Indication: CHRONIC HEPATITIS C
     Dosage: 400MG IN MORNING AND 600MG IN EVENING
     Route: 048
     Dates: start: 20130914, end: 20131129
  7. NITROLINGUAL [Suspect]
     Active Substance: NITROGLYCERIN
     Indication: PRODUCT USED FOR UNKNOWN INDICATION
     Dosage: LINGUAL SPRAY
  8. CEFADROXIL (CEFADROXIL) (CEFADROXIL) [Concomitant]
  9. PEGINTERFERON ALFA-2A [Suspect]
     Active Substance: PEGINTERFERON ALFA-2A
     Indication: CHRONIC HEPATITIS C
     Route: 058
     Dates: start: 20130913, end: 20140116
  10. TICAGRELOR [Concomitant]
     Active Substance: TICAGRELOR
  11. HYDROXYZINE [Concomitant]
     Active Substance: HYDROXYZINE\HYDROXYZINE HYDROCHLORIDE
     Dosage: LINGUAL SPRAY

REACTIONS (13)
  - Haemoglobin decreased [None]
  - Blood triglycerides increased [None]
  - Creatinine renal clearance decreased [None]
  - Rash macular [None]
  - Electrocardiogram QRS complex prolonged [None]
  - Blood pressure systolic increased [None]
  - Myocardial infarction [None]
  - Platelet count decreased [None]
  - Lymphocyte count decreased [None]
  - Angina unstable [None]
  - Pruritus [None]
  - White blood cell count decreased [None]
  - Apolipoprotein E abnormal [None]

NARRATIVE: CASE EVENT DATE: 20140115
